FAERS Safety Report 5982728-5 (Version None)
Quarter: 2008Q4

REPORT INFORMATION
  Report Type: 
  Country: None (occurrence: None)
  Receive Date: 20081208
  Receipt Date: 20081103
  Transmission Date: 20090506
  Serious: No
  Sender: FDA-Public Use
  Company Number: US-BAYER-200837802NA

PATIENT
  Sex: Female

DRUGS (1)
  1. MIRENA [Suspect]
     Indication: DRUG USE FOR UNKNOWN INDICATION
     Route: 015
     Dates: start: 20080829

REACTIONS (4)
  - ABDOMINAL DISTENSION [None]
  - GENITAL HAEMORRHAGE [None]
  - MIGRAINE [None]
  - MOOD ALTERED [None]
